FAERS Safety Report 11101086 (Version 1)
Quarter: 2015Q2

REPORT INFORMATION
  Report Type: Report from Study
  Country: CO (occurrence: CO)
  Receive Date: 20150508
  Receipt Date: 20150508
  Transmission Date: 20150821
  Serious: Yes (Death, Hospitalization)
  Sender: FDA-Public Use
  Company Number: CO-ABBVIE-15K-036-1387504-00

PATIENT
  Age: 39 Year
  Sex: Female
  Weight: 25 kg

DRUGS (3)
  1. METHOTREXATE [Concomitant]
     Active Substance: METHOTREXATE
     Indication: PRODUCT USED FOR UNKNOWN INDICATION
  2. CALCIUM [Concomitant]
     Active Substance: CALCIUM
     Indication: PRODUCT USED FOR UNKNOWN INDICATION
  3. HUMIRA [Suspect]
     Active Substance: ADALIMUMAB
     Indication: RHEUMATOID ARTHRITIS
     Route: 058
     Dates: start: 20140124, end: 20140808

REACTIONS (6)
  - Asthenia [Fatal]
  - Quality of life decreased [Fatal]
  - Decreased appetite [Fatal]
  - Malnutrition [Fatal]
  - Cardio-respiratory arrest [Fatal]
  - Anaemia [Fatal]

NARRATIVE: CASE EVENT DATE: 20140901
